FAERS Safety Report 24027055 (Version 1)
Quarter: 2024Q2

REPORT INFORMATION
  Report Type: Report from Study
  Country: TR (occurrence: TR)
  Receive Date: 20240628
  Receipt Date: 20240628
  Transmission Date: 20240715
  Serious: No
  Sender: FDA-Public Use
  Company Number: TR-ROCHE-3577368

PATIENT
  Age: 37 Year
  Sex: Male
  Weight: 69.0 kg

DRUGS (14)
  1. ALECTINIB [Suspect]
     Active Substance: ALECTINIB
     Indication: Non-small cell lung cancer metastatic
     Route: 048
     Dates: start: 20210611
  2. GERALGINE-K [Concomitant]
     Dates: start: 20210310
  3. DEXAMETHASONE [Concomitant]
     Active Substance: DEXAMETHASONE
     Route: 048
     Dates: start: 20210317
  4. DELTACORTRIL [Concomitant]
     Active Substance: PREDNISOLONE
     Route: 048
     Dates: start: 20210907, end: 20231029
  5. SULFASALAZINE [Concomitant]
     Active Substance: SULFASALAZINE
     Route: 048
     Dates: start: 20210907, end: 20231029
  6. D-COLEFOR [Concomitant]
     Route: 048
     Dates: start: 20210907
  7. NUTRIVIGOR [Concomitant]
     Route: 048
     Dates: start: 20211107
  8. KEPPRA [Concomitant]
     Active Substance: LEVETIRACETAM
     Route: 048
     Dates: start: 20220825
  9. BENEDAY [Concomitant]
     Route: 048
     Dates: start: 20220614, end: 20221003
  10. LANSOPRAZOLE [Concomitant]
     Active Substance: LANSOPRAZOLE
     Route: 048
     Dates: start: 20210317
  11. NUROFEN COLD + FLU (TURKIYE) [Concomitant]
  12. BACTROBAN [Concomitant]
     Active Substance: MUPIROCIN CALCIUM
     Dates: start: 20220517
  13. TANFLEX [Concomitant]
     Route: 048
     Dates: start: 20220614
  14. EPINEPHRINE\LIDOCAINE HYDROCHLORIDE [Concomitant]
     Active Substance: EPINEPHRINE\LIDOCAINE HYDROCHLORIDE
     Dates: start: 20220614

REACTIONS (2)
  - Upper respiratory tract infection [Recovered/Resolved]
  - Headache [Recovered/Resolved]

NARRATIVE: CASE EVENT DATE: 20220913
